FAERS Safety Report 7512349-4 (Version None)
Quarter: 2011Q2

REPORT INFORMATION
  Report Type: 
  Country: None (occurrence: None)
  Receive Date: 20110531
  Receipt Date: 20110523
  Transmission Date: 20111010
  Serious: Yes (Death, Other)
  Sender: FDA-Public Use
  Company Number: ES-ROCHE-745849

PATIENT

DRUGS (1)
  1. OSELTAMIVIR [Suspect]
     Indication: H1N1 INFLUENZA
     Dosage: DOSE: 75 MG TWICE DAILY IN ALL PATIENTS EXCEPT IN 33 PATIENT WHO REVEICED 150 MG TWIE DAILY
     Route: 065

REACTIONS (12)
  - HEPATITIS VIRAL [None]
  - THROMBOSIS IN DEVICE [None]
  - ENCEPHALITIS [None]
  - ACUTE RESPIRATORY DISTRESS SYNDROME [None]
  - NOSOCOMIAL INFECTION [None]
  - MENINGITIS [None]
  - RESPIRATORY FAILURE [None]
  - VISUAL IMPAIRMENT [None]
  - ASTHMA [None]
  - DIABETIC KETOACIDOSIS [None]
  - SHOCK [None]
  - RENAL FAILURE ACUTE [None]
